FAERS Safety Report 18890406 (Version 2)
Quarter: 2021Q1

REPORT INFORMATION
  Report Type: Report from Study
  Country: None (occurrence: CH)
  Receive Date: 20210214
  Receipt Date: 20210318
  Transmission Date: 20210420
  Serious: Yes (Hospitalization)
  Sender: FDA-Public Use
  Company Number: CH-ABBVIE-20K-151-3609306-00

PATIENT
  Age: 56 Year
  Sex: Female

DRUGS (11)
  1. DUODOPA [Suspect]
     Active Substance: CARBIDOPA\LEVODOPA
     Dosage: MD: 3.2 ML, CRD: REDUCE TO 3.0 ML/H UNTIL 10PM, CRN: 2.6 ML/H, ED: 1 ML
     Route: 050
     Dates: start: 20201120, end: 20201120
  2. DUODOPA [Suspect]
     Active Substance: CARBIDOPA\LEVODOPA
     Dosage: MD: 3.2 ML, CRD: INCREASED, PUMP STOP 1H, REDUCE TO 4ML/H, CRN: 2.6 ML/H, ED: 1 ML
     Route: 050
     Dates: start: 202011, end: 202011
  3. DUODOPA [Suspect]
     Active Substance: CARBIDOPA\LEVODOPA
     Dosage: MD: 3.5 ML, CRD: 4.3ML/H, CRN: 2.7 ML/H, ED: 1 ML
     Route: 050
     Dates: start: 20210104
  4. DUODOPA [Suspect]
     Active Substance: CARBIDOPA\LEVODOPA
     Dosage: MD: 3.2 ML, CRD: 4.2ML/H, CRN: 2.6 ML/H, ED: 0.4 ML
     Route: 050
     Dates: start: 20201209, end: 20210104
  5. BACTRIM [Suspect]
     Active Substance: SULFAMETHOXAZOLE\TRIMETHOPRIM
     Indication: URINARY TRACT INFECTION
     Route: 065
  6. TEMESTA [Concomitant]
     Indication: PRODUCT USED FOR UNKNOWN INDICATION
     Dosage: UP TO 7 TIMES A DAY 1MG (4 AT FIXED TIMES AND 3 IN RESERVE)
  7. DUODOPA [Suspect]
     Active Substance: CARBIDOPA\LEVODOPA
     Dosage: MD: 3.2 ML, CRD: 4 ML/H, CRN: 2 ML/H, ED: 1 ML 24 H THERAPY
     Route: 050
     Dates: start: 20200508, end: 20201120
  8. DUODOPA [Suspect]
     Active Substance: CARBIDOPA\LEVODOPA
     Dosage: MD: 3.2 ML, PUMP STOP 1.5H, CRD: 3.9ML/H, CRN: 2.6 ML/H, ED: 1ML
     Route: 050
     Dates: start: 202011, end: 20201122
  9. DUODOPA [Suspect]
     Active Substance: CARBIDOPA\LEVODOPA
     Dosage: MD: 3.2 ML, PUMP STOP 1.5H, CRD: 3.9ML/H, CRN: 2.6 ML/H, ED:0.5 ML
     Route: 050
     Dates: start: 2020, end: 20201209
  10. DUODOPA [Suspect]
     Active Substance: CARBIDOPA\LEVODOPA
     Indication: PARKINSON^S DISEASE
     Route: 050
     Dates: start: 20170321, end: 20190702
  11. DUODOPA [Suspect]
     Active Substance: CARBIDOPA\LEVODOPA
     Dosage: MD: 3 ML, CRD: 3.4 ML/H, CRN: 1.4 ML/H, ED: 1 ML 24 H THERAPY
     Route: 050
     Dates: start: 20190702, end: 20200508

REACTIONS (12)
  - Nausea [Recovered/Resolved]
  - Hyperkinesia [Recovering/Resolving]
  - Cystitis [Not Recovered/Not Resolved]
  - Dyskinesia [Unknown]
  - Sleep disorder [Unknown]
  - Urinary tract infection [Recovering/Resolving]
  - Musculoskeletal stiffness [Unknown]
  - Vomiting [Recovered/Resolved]
  - Fatigue [Not Recovered/Not Resolved]
  - Tremor [Unknown]
  - Device occlusion [Unknown]
  - Device alarm issue [Recovered/Resolved]

NARRATIVE: CASE EVENT DATE: 202010
